FAERS Safety Report 5679509-9 (Version None)
Quarter: 2008Q1

REPORT INFORMATION
  Report Type: 
  Country: None (occurrence: None)
  Receive Date: 20080325
  Receipt Date: 20080312
  Transmission Date: 20080703
  Serious: Yes (Other)
  Sender: FDA-Public Use
  Company Number: JP-BOEHRINGER INGELHEIM GMBH, GERMANY-2008-BP-04586NB

PATIENT
  Age: 50 Year
  Sex: Male

DRUGS (4)
  1. BI-SIFROL TABLETS [Suspect]
     Indication: PARKINSON'S DISEASE
     Route: 048
  2. LEVODOPA [Concomitant]
     Indication: PARKINSON'S DISEASE
  3. CABERGOLINE [Concomitant]
     Indication: PARKINSON'S DISEASE
  4. SELEGILINE HCL [Concomitant]
     Indication: PARKINSON'S DISEASE

REACTIONS (1)
  - SLEEP ATTACKS [None]
